FAERS Safety Report 18398718 (Version 1)
Quarter: 2020Q4

REPORT INFORMATION
  Report Type: Spontaneous
  Country: US (occurrence: US)
  Receive Date: 20201019
  Receipt Date: 20201019
  Transmission Date: 20210114
  Serious: No
  Sender: FDA-Public Use
  Company Number: US-PFIZER INC-2018489187

PATIENT
  Age: 44 Year
  Sex: Female

DRUGS (8)
  1. LYRICA [Interacting]
     Active Substance: PREGABALIN
     Indication: OCCIPITAL NEURALGIA
     Dosage: 100 MG, 3X/DAY
     Route: 048
  2. LYRICA [Interacting]
     Active Substance: PREGABALIN
     Indication: PAIN
  3. LYRICA [Interacting]
     Active Substance: PREGABALIN
     Indication: INTERVERTEBRAL DISC DISORDER
     Dosage: 75 MG, 3X/DAY
     Route: 048
  4. LYRICA [Interacting]
     Active Substance: PREGABALIN
     Indication: BLADDER CANCER
  5. LYRICA [Interacting]
     Active Substance: PREGABALIN
     Indication: FIBROMYALGIA
  6. LYRICA [Suspect]
     Active Substance: PREGABALIN
     Indication: MYELOPATHY
     Dosage: 50 MG, 3X/DAY
     Route: 048
  7. LYRICA [Interacting]
     Active Substance: PREGABALIN
     Indication: SEIZURE
  8. IBUPROFEN. [Interacting]
     Active Substance: IBUPROFEN

REACTIONS (2)
  - Pain [Unknown]
  - Drug interaction [Unknown]
